FAERS Safety Report 18065470 (Version 1)
Quarter: 2020Q3

REPORT INFORMATION
  Report Type: Spontaneous
  Country: US (occurrence: US)
  Receive Date: 20200724
  Receipt Date: 20200724
  Transmission Date: 20201103
  Serious: Yes (Other)
  Sender: FDA-Public Use
  Company Number: US-CADILA HEALTHCARE LIMITED-US-ZYDUS-053576

PATIENT

DRUGS (2)
  1. METHOTREXATE. [Suspect]
     Active Substance: METHOTREXATE
     Indication: PRIMARY MEDIASTINAL LARGE B-CELL LYMPHOMA
     Dosage: UNK
     Route: 013
  2. MANNITOL. [Suspect]
     Active Substance: MANNITOL
     Indication: BLOOD BRAIN BARRIER DEFECT
     Dosage: UNK
     Route: 013

REACTIONS (1)
  - Maculopathy [Unknown]
